FAERS Safety Report 13855836 (Version 1)
Quarter: 2017Q3

REPORT INFORMATION
  Report Type: Spontaneous
  Country: US (occurrence: US)
  Receive Date: 20170810
  Receipt Date: 20170810
  Transmission Date: 20171127
  Serious: No
  Sender: FDA-Public Use
  Company Number: US-VIFOR (INTERNATIONAL) INC.-VIT-2017-00598

PATIENT
  Age: 67 Year
  Sex: Female

DRUGS (29)
  1. SODIUM BICARBONATE. [Concomitant]
     Active Substance: SODIUM BICARBONATE
  2. SENNOSIDE A+B [Concomitant]
     Active Substance: SENNOSIDES A AND B
  3. LORATADINE. [Concomitant]
     Active Substance: LORATADINE
  4. ACETYLSALICYLIC ACID [Concomitant]
     Active Substance: ASPIRIN
  5. CITRACAL+D [Concomitant]
  6. ERGOCALCIFEROL/ASCORBIC ACID/CALCIUM PANTOTHENATE/ERGOCALCIFEROL/NICOTINAMIDE/PYRIDOXINE HYDROCHLORI [Concomitant]
  7. ZOFRAN [Concomitant]
     Active Substance: ONDANSETRON HYDROCHLORIDE
  8. LEVOTHYROXINE SODIUM. [Concomitant]
     Active Substance: LEVOTHYROXINE SODIUM
  9. METOLAZONE. [Concomitant]
     Active Substance: METOLAZONE
  10. RANITIDINE HYDROCHLORIDE. [Concomitant]
     Active Substance: RANITIDINE HYDROCHLORIDE
  11. RETIN-A [Concomitant]
     Active Substance: TRETINOIN
  12. VALIUM [Concomitant]
     Active Substance: DIAZEPAM
  13. PREDNISONE. [Concomitant]
     Active Substance: PREDNISONE
  14. PROBIOTIC ACIDOPHILUS XTRA [Concomitant]
  15. SIMETHICONE (DIMETHICONE) [Concomitant]
     Active Substance: DIMETHICONE
  16. PROGRAF [Concomitant]
     Active Substance: TACROLIMUS\TACROLIMUS ANHYDROUS
  17. SODIUM POLYSTYRENE SULFONATE. [Concomitant]
     Active Substance: SODIUM POLYSTYRENE SULFONATE
  18. TUMS [Concomitant]
     Active Substance: CALCIUM CARBONATE
  19. FISH OIL [Concomitant]
     Active Substance: FISH OIL
  20. MAGNESIUM [Concomitant]
     Active Substance: MAGNESIUM
  21. PROMETHAZINE HYDROCHLORIDE. [Concomitant]
     Active Substance: PROMETHAZINE HYDROCHLORIDE
  22. CYANOCOBALAMIN. [Concomitant]
     Active Substance: CYANOCOBALAMIN
  23. VELTASSA [Suspect]
     Active Substance: PATIROMER
     Indication: HYPERKALAEMIA
     Route: 048
     Dates: start: 20160601
  24. PARACETAMOL [Concomitant]
     Active Substance: ACETAMINOPHEN
  25. BIOTIN [Concomitant]
     Active Substance: BIOTIN
  26. CARVEDILOL. [Concomitant]
     Active Substance: CARVEDILOL
  27. CELLCEPT [Concomitant]
     Active Substance: MYCOPHENOLATE MOFETIL\MYCOPHENOLATE MOFETIL HYDROCHLORIDE
  28. LOPERAMIDE HYDROCHLORIDE. [Concomitant]
     Active Substance: LOPERAMIDE HYDROCHLORIDE
  29. COLECALCIFEROL [Concomitant]
     Active Substance: CHOLECALCIFEROL

REACTIONS (2)
  - Diarrhoea [Recovered/Resolved]
  - Product preparation error [Unknown]

NARRATIVE: CASE EVENT DATE: 2016
